FAERS Safety Report 5427368-1 (Version None)
Quarter: 2007Q3

REPORT INFORMATION
  Report Type: 
  Country: None (occurrence: None)
  Receive Date: 20070828
  Receipt Date: 20070820
  Transmission Date: 20080115
  Serious: Yes (Hospitalization)
  Sender: FDA-Public Use
  Company Number: FR-AVENTIS-200712679FR

PATIENT
  Age: 83 Year
  Sex: Female

DRUGS (2)
  1. LASILIX                            /00032601/ [Suspect]
     Route: 048
     Dates: end: 20060926
  2. TRIATEC                            /00885601/ [Suspect]
     Route: 048
     Dates: end: 20060926

REACTIONS (7)
  - DRUG INTERACTION [None]
  - FACIAL PALSY [None]
  - GENERAL PHYSICAL HEALTH DETERIORATION [None]
  - HYPOCHLORAEMIA [None]
  - HYPONATRAEMIA [None]
  - MALAISE [None]
  - RENAL FAILURE [None]
